FAERS Safety Report 17599858 (Version 2)
Quarter: 2020Q2

REPORT INFORMATION
  Report Type: Spontaneous
  Country: CO (occurrence: CO)
  Receive Date: 20200330
  Receipt Date: 20200409
  Transmission Date: 20200713
  Serious: Yes (Death, Life-Threatening, Hospitalization)
  Sender: FDA-Public Use
  Company Number: NVSC2020CO086477

PATIENT
  Age: 46 Year
  Sex: Female

DRUGS (1)
  1. MYCOPHENOLATE MOFETIL. [Suspect]
     Active Substance: MYCOPHENOLATE MOFETIL
     Indication: PEMPHIGUS
     Dosage: UNK
     Route: 065

REACTIONS (4)
  - Pemphigus [Recovering/Resolving]
  - Product use in unapproved indication [Unknown]
  - Sepsis [Fatal]
  - Septic shock [Fatal]
